FAERS Safety Report 9753137 (Version 2)
Quarter: 2015Q3

REPORT INFORMATION
  Report Type: Spontaneous
  Country: US (occurrence: US)
  Receive Date: 20131213
  Receipt Date: 20150805
  Transmission Date: 20151125
  Serious: No
  Sender: FDA-Public Use
  Company Number: US-GILEAD-2010-0026392

PATIENT
  Age: 51 Year
  Sex: Female
  Weight: 74.84 kg

DRUGS (15)
  1. NITROQUICK [Concomitant]
     Active Substance: NITROGLYCERIN
  2. ALBUTEROL. [Concomitant]
     Active Substance: ALBUTEROL
  3. ALPRAZOLAM. [Concomitant]
     Active Substance: ALPRAZOLAM
  4. LYRICA [Concomitant]
     Active Substance: PREGABALIN
  5. METHADONE HCL [Concomitant]
     Active Substance: METHADONE HYDROCHLORIDE
  6. VITAMIN D [Concomitant]
     Active Substance: CHOLECALCIFEROL
  7. AVELOX [Concomitant]
     Active Substance: MOXIFLOXACIN HYDROCHLORIDE
  8. OXYGEN. [Concomitant]
     Active Substance: OXYGEN
  9. PREDNISONE. [Concomitant]
     Active Substance: PREDNISONE
  10. CELLCEPT [Concomitant]
     Active Substance: MYCOPHENOLATE MOFETIL\MYCOPHENOLATE MOFETIL HYDROCHLORIDE
  11. CELEXA [Concomitant]
     Active Substance: CITALOPRAM HYDROBROMIDE
  12. NIFEDICAL XL [Concomitant]
     Active Substance: NIFEDIPINE
  13. FUROSEMIDE. [Concomitant]
     Active Substance: FUROSEMIDE
  14. LETAIRIS [Suspect]
     Active Substance: AMBRISENTAN
     Indication: PULMONARY ARTERIAL HYPERTENSION
     Route: 048
     Dates: start: 20091127
  15. TRAMADOL HCL [Concomitant]
     Active Substance: TRAMADOL HYDROCHLORIDE

REACTIONS (1)
  - Dyspnoea [Unknown]
